FAERS Safety Report 9696297 (Version 1)
Quarter: 2013Q4

REPORT INFORMATION
  Report Type: Report from Study
  Country: BR (occurrence: BR)
  Receive Date: 20131119
  Receipt Date: 20131119
  Transmission Date: 20140711
  Serious: Yes (Death)
  Sender: FDA-Public Use
  Company Number: PHHY2013BR132253

PATIENT
  Sex: Male
  Weight: 80 kg

DRUGS (2)
  1. DIOVAN [Suspect]
     Indication: HYPERTENSION
     Dosage: 80 MG, QD (ONCE AT NIGHT)
     Route: 048
  2. LEXOTAN [Concomitant]
     Indication: SLEEP DISORDER
     Dosage: 6 MG, UNK

REACTIONS (1)
  - Respiratory failure [Fatal]
